FAERS Safety Report 7053196-X (Version None)
Quarter: 2010Q4

REPORT INFORMATION
  Report Type: 
  Country: None (occurrence: None)
  Receive Date: 20101020
  Receipt Date: 20101008
  Transmission Date: 20110411
  Serious: Yes (Other)
  Sender: FDA-Public Use
  Company Number: US-JNJFOC-20101002958

PATIENT
  Sex: Male
  Weight: 46.27 kg

DRUGS (7)
  1. REMICADE [Suspect]
     Indication: CROHN'S DISEASE
     Route: 042
  2. REMICADE [Suspect]
     Route: 042
  3. REMICADE [Suspect]
     Route: 042
  4. PENTASA [Concomitant]
     Indication: CROHN'S DISEASE
  5. CALCIUM [Concomitant]
     Indication: MEDICAL DIET
  6. VITAMIN D [Concomitant]
     Indication: MEDICAL DIET
  7. IRON SUPPLEMENT [Concomitant]
     Indication: MEDICAL DIET

REACTIONS (2)
  - ANAPHYLACTIC REACTION [None]
  - MUSCLE SPASMS [None]
